FAERS Safety Report 4896064-1 (Version None)
Quarter: 2005Q4

REPORT INFORMATION
  Report Type: 
  Country: None (occurrence: None)
  Receive Date: 20051220
  Receipt Date: 20050407
  Transmission Date: 20060501
  Serious: Yes (Hospitalization, Other)
  Sender: FDA-Public Use
  Company Number: US125452

PATIENT
  Age: 47 Year
  Sex: Female
  Weight: 77.2 kg

DRUGS (3)
  1. ENBREL [Suspect]
     Indication: RHEUMATOID ARTHRITIS
     Dosage: 50 MG, 1 IN 1 WEEKS, SC
     Route: 058
     Dates: start: 20040301, end: 20050322
  2. LEFLUNOMIDE [Concomitant]
  3. PREDNISONE [Concomitant]

REACTIONS (3)
  - PEPTOSTREPTOCOCCUS INFECTION [None]
  - RETROPERITONEAL ABSCESS [None]
  - UPPER RESPIRATORY TRACT INFECTION [None]
